FAERS Safety Report 7138254-3 (Version None)
Quarter: 2010Q4

REPORT INFORMATION
  Report Type: 
  Country: None (occurrence: None)
  Receive Date: 20101118
  Receipt Date: 20101104
  Transmission Date: 20110411
  Serious: Yes (Disabling)
  Sender: FDA-Public Use
  Company Number: 021569

PATIENT
  Sex: Female

DRUGS (3)
  1. LACOSAMIDE [Suspect]
     Indication: CONVULSION
     Dosage: (100 MG BID)
     Dates: start: 20101005
  2. KEPPRA [Suspect]
     Indication: CONVULSION
     Dosage: (1000 MG BID)
     Dates: start: 20100603
  3. TOPAMAX [Suspect]
     Indication: CONVULSION
     Dosage: (500 MG, 200 MG IN AM AND 300 MG IN PM)

REACTIONS (2)
  - CONVULSION [None]
  - DRUG INEFFECTIVE [None]
